FAERS Safety Report 25994131 (Version 1)
Quarter: 2025Q4

REPORT INFORMATION
  Report Type: Spontaneous
  Country: US (occurrence: US)
  Receive Date: 20251104
  Receipt Date: 20251104
  Transmission Date: 20260118
  Serious: Yes (Death)
  Sender: ROCHE
  Company Number: US-ROCHE-10000423656

PATIENT
  Age: 42 Year
  Sex: Male

DRUGS (6)
  1. TOCILIZUMAB [Suspect]
     Active Substance: TOCILIZUMAB
     Indication: Cytokine release syndrome
     Route: 058
  2. PIRTOBRUTINIB [Concomitant]
     Active Substance: PIRTOBRUTINIB
  3. METHYLPREDNISOLONE [Concomitant]
     Active Substance: METHYLPREDNISOLONE
     Route: 042
  4. LEVETIRACETAM [Concomitant]
     Active Substance: LEVETIRACETAM
  5. LORAZEPAM [Concomitant]
     Active Substance: LORAZEPAM
  6. PROPOFOL [Concomitant]
     Active Substance: PROPOFOL
     Route: 042

REACTIONS (2)
  - Immune effector cell-associated neurotoxicity syndrome [Fatal]
  - Brain oedema [Fatal]
